FAERS Safety Report 16003814 (Version 1)
Quarter: 2019Q1

REPORT INFORMATION
  Report Type: Spontaneous
  Country: FR (occurrence: FR)
  Receive Date: 20190226
  Receipt Date: 20190226
  Transmission Date: 20190418
  Serious: Yes (Hospitalization, Other)
  Sender: FDA-Public Use
  Company Number: FR-ACCORD-108695

PATIENT
  Age: 62 Year
  Sex: Female
  Weight: 81 kg

DRUGS (31)
  1. CELLCEPT [Concomitant]
     Active Substance: MYCOPHENOLATE MOFETIL\MYCOPHENOLATE MOFETIL HYDROCHLORIDE
     Indication: IMMUNOSUPPRESSION
     Dosage: 2 DF, BID (2 TABLETS AT 08:00, 20:00 (IE 1G MORNING AND EVENING)
     Route: 065
  2. BACTRIM [Concomitant]
     Active Substance: SULFAMETHOXAZOLE\TRIMETHOPRIM
     Indication: INFECTION
     Dosage: 1 DF, MON WED FRI AT 08:00
     Route: 048
  3. RESIKALI [Concomitant]
     Active Substance: CALCIUM POLYSTYRENE SULFONATE
     Indication: GENERAL SYMPTOM
     Dosage: 1 SPOON IN THE MORNING AND IN THE EVENING, BID
     Route: 065
  4. RAMIPRIL. [Suspect]
     Active Substance: RAMIPRIL
     Indication: PRODUCT USED FOR UNKNOWN INDICATION
     Dosage: 1 DF, QD, RECEIVED FROM 05-NOV-2012.
     Route: 065
     Dates: start: 20180527
  5. ALTIZIDE/SPIRONOLACTONE [Suspect]
     Active Substance: ALTHIAZIDE\SPIRONOLACTONE
     Indication: HYPERTENSION
     Dosage: 1 DF, QD, ALSO RECEIVED FROM 01-MAR-2013.
     Route: 065
     Dates: start: 20160321
  6. JANUVIA [Concomitant]
     Active Substance: SITAGLIPTIN PHOSPHATE
     Indication: CARDIAC DISORDER
     Dosage: 1 DF, QD
     Route: 065
  7. SECTRAL [Concomitant]
     Active Substance: ACEBUTOLOL HYDROCHLORIDE
     Indication: CARDIAC DISORDER
     Dosage: 0.5 DF, 1/2 TABLET AT 08:00
     Route: 048
  8. VOGALENE [Concomitant]
     Active Substance: METOPIMAZINE
     Indication: PRODUCT USED FOR UNKNOWN INDICATION
     Dosage: UNK
     Dates: start: 20160331
  9. OFLOCET [Concomitant]
     Active Substance: OFLOXACIN
     Indication: URINARY TRACT INFECTION
     Dosage: UNK (5 DAYS)
     Route: 065
  10. ACEBUTOLOL [Suspect]
     Active Substance: ACEBUTOLOL
     Indication: PRODUCT USED FOR UNKNOWN INDICATION
     Dosage: UNK
     Dates: start: 20121105
  11. NAPROXEN. [Suspect]
     Active Substance: NAPROXEN
     Indication: BACK PAIN
     Dosage: UNK
     Dates: start: 20160730
  12. ACEBUTOLOL [Suspect]
     Active Substance: ACEBUTOLOL
     Indication: PRODUCT USED FOR UNKNOWN INDICATION
     Dosage: 0.5 DF, BID (HALF TABLET ON MORNING),RECEIVED FROM 05-NOV-2012.
     Dates: start: 20180527
  13. LERCANIDIPINE [Suspect]
     Active Substance: LERCANIDIPINE
     Indication: PRODUCT USED FOR UNKNOWN INDICATION
     Dosage: 1 DF, QD
     Dates: start: 20180527
  14. NAPROXEN SODIUM. [Suspect]
     Active Substance: NAPROXEN SODIUM
     Indication: PRODUCT USED FOR UNKNOWN INDICATION
     Dosage: UNK UNK, UNK
     Route: 065
     Dates: start: 20160311, end: 20160730
  15. MEDROL [Concomitant]
     Active Substance: METHYLPREDNISOLONE
     Indication: IMMUNOSUPPRESSION
     Route: 065
  16. FORTIMEL [Concomitant]
     Active Substance: DIETARY SUPPLEMENT
     Indication: PROTEIN DEFICIENCY
     Dosage: 125 ML, QD
     Route: 048
  17. ACEBUTOLOL [Suspect]
     Active Substance: ACEBUTOLOL
     Indication: PRODUCT USED FOR UNKNOWN INDICATION
     Dosage: UNK
     Dates: start: 20121105
  18. IXPRIM [Suspect]
     Active Substance: ACETAMINOPHEN\TRAMADOL HYDROCHLORIDE
     Indication: BACK PAIN
     Dosage: 3 DF, TID
     Dates: start: 20110816
  19. ANTALNOX [Suspect]
     Active Substance: NAPROXEN SODIUM
     Indication: PRODUCT USED FOR UNKNOWN INDICATION
     Dosage: UNK, RECEIVED FROM 11-MAR-2016, FROM 11-MAR TO 30-JUL-2016.
     Route: 065
     Dates: start: 20160730
  20. KARDEGIC [Concomitant]
     Active Substance: ASPIRIN DL-LYSINE
     Indication: CARDIAC DISORDER
     Dosage: 1 DF, QD
     Route: 065
  21. OMEPRAZOLE. [Concomitant]
     Active Substance: OMEPRAZOLE
     Indication: PRODUCT USED FOR UNKNOWN INDICATION
     Dosage: UNK
     Dates: start: 20160331
  22. FLUVASTATIN MYLAN [Suspect]
     Active Substance: FLUVASTATIN SODIUM
     Indication: PRODUCT USED FOR UNKNOWN INDICATION
     Dosage: 1 DF, QD
     Dates: start: 20110201, end: 20160517
  23. MELOXICAM. [Suspect]
     Active Substance: MELOXICAM
     Indication: PRODUCT USED FOR UNKNOWN INDICATION
     Dosage: UNK
     Route: 065
     Dates: start: 201603
  24. PROGRAF [Concomitant]
     Active Substance: TACROLIMUS\TACROLIMUS ANHYDROUS
     Indication: PRODUCT USED FOR UNKNOWN INDICATION
     Dosage: UNK (AT 8)
     Route: 065
  25. ATORVASTATIN MYLAN [Suspect]
     Active Substance: ATORVASTATIN
     Indication: PAIN IN EXTREMITY
     Dosage: 1 DF, QD,10 MG DOSE FROM 01-MAR-2016 TO 17-MAY-2016,20 MG FROM 22-SEP-2015.
     Route: 065
     Dates: start: 20160730
  26. APRANAX [Suspect]
     Active Substance: NAPROXEN
     Indication: NAUSEA
     Dosage: 1 DF, QD, RECEIVED FROM 30-JUL-2016.
     Dates: start: 20160322
  27. TANGANIL [Suspect]
     Active Substance: ACETYLLEUCINE
     Indication: DIZZINESS
     Dosage: 2 DF, BID
  28. ADVAGRAF [Concomitant]
     Active Substance: TACROLIMUS
     Indication: IMMUNOSUPPRESSION
     Dosage: 6 MG, AT 08:00
     Route: 048
  29. LANSOPRAZOLE. [Concomitant]
     Active Substance: LANSOPRAZOLE
     Indication: GENERAL SYMPTOM
     Dosage: 30 MG, QD (30 MG AT 20:00)
     Route: 048
  30. COLECALCIFEROL [Concomitant]
     Active Substance: CHOLECALCIFEROL
     Indication: PRODUCT USED FOR UNKNOWN INDICATION
  31. ALTIZIDE/SPIRONOLACTONE [Suspect]
     Active Substance: ALTHIAZIDE\SPIRONOLACTONE
     Indication: PRODUCT USED FOR UNKNOWN INDICATION
     Dosage: 1 DF, QD
     Dates: start: 20180527

REACTIONS (4)
  - Gastrointestinal disorder [Unknown]
  - Hepatitis acute [Unknown]
  - Sleep apnoea syndrome [Unknown]
  - Hepatic necrosis [Unknown]

NARRATIVE: CASE EVENT DATE: 20160517
